FAERS Safety Report 11154581 (Version 1)
Quarter: 2015Q2

REPORT INFORMATION
  Report Type: Spontaneous
  Country: US (occurrence: None)
  Receive Date: 20150529
  Receipt Date: 20150529
  Transmission Date: 20150821
  Serious: Yes (Death, Other)
  Sender: FDA-Public Use
  Company Number: US2015GSK070632

PATIENT
  Age: 1 Day

DRUGS (1)
  1. TUMS [Suspect]
     Active Substance: CALCIUM CARBONATE
     Indication: DYSPEPSIA
     Route: 064
     Dates: start: 201412

REACTIONS (3)
  - Death neonatal [None]
  - Maternal drugs affecting foetus [None]
  - Premature baby [None]

NARRATIVE: CASE EVENT DATE: 201412
